FAERS Safety Report 11462118 (Version 1)
Quarter: 2015Q3

REPORT INFORMATION
  Report Type: Spontaneous
  Country: US (occurrence: US)
  Receive Date: 20150831
  Receipt Date: 20150831
  Transmission Date: 20151125
  Serious: No
  Sender: FDA-Public Use
  Company Number: US-ELI_LILLY_AND_COMPANY-US201010000803

PATIENT
  Sex: Female

DRUGS (2)
  1. CYMBALTA [Suspect]
     Active Substance: DULOXETINE HYDROCHLORIDE
     Dosage: 30 MG, UNKNOWN
     Dates: end: 2010
  2. CYMBALTA [Suspect]
     Active Substance: DULOXETINE HYDROCHLORIDE
     Indication: POSTPARTUM DEPRESSION
     Dosage: 60 MG, DAILY (1/D)
     Dates: start: 2005, end: 2010

REACTIONS (8)
  - Feeling abnormal [Unknown]
  - Tremor [Unknown]
  - Paraesthesia [Unknown]
  - Chest discomfort [Unknown]
  - Dyspnoea [Unknown]
  - Crying [Unknown]
  - Diarrhoea [Unknown]
  - Drug withdrawal syndrome [Unknown]
